FAERS Safety Report 5782911-8 (Version None)
Quarter: 2008Q2

REPORT INFORMATION
  Report Type: 
  Country: None (occurrence: None)
  Receive Date: 20080624
  Receipt Date: 20080617
  Transmission Date: 20081010
  Serious: Yes (Hospitalization)
  Sender: FDA-Public Use
  Company Number: US-MERCK-0806USA03764

PATIENT
  Age: 35 Year
  Sex: Male

DRUGS (1)
  1. ZOCOR [Suspect]
     Indication: BLOOD CHOLESTEROL
     Route: 048
     Dates: start: 20070726

REACTIONS (4)
  - ASTHENIA [None]
  - BRADYCARDIA [None]
  - MUSCLE FATIGUE [None]
  - PAIN IN EXTREMITY [None]
